FAERS Safety Report 8651444 (Version 3)
Quarter: 2012Q4

REPORT INFORMATION
  Report Type: 
  Country: US (occurrence: US)
  Receive Date: 20120706
  Receipt Date: 20121217
  Transmission Date: 20130627
  Serious: No
  Sender: FDA-Public Use
  Company Number: US-BIOGENIDEC-2012BI022879

PATIENT
  Age: 50 None
  Sex: Female

DRUGS (7)
  1. AVONEX [Suspect]
     Indication: MULTIPLE SCLEROSIS
     Route: 030
     Dates: start: 20021001, end: 200303
  2. AVONEX [Suspect]
     Indication: MULTIPLE SCLEROSIS
     Route: 030
     Dates: start: 20111208, end: 201206
  3. AVONEX [Suspect]
     Indication: MULTIPLE SCLEROSIS
     Route: 030
     Dates: start: 20120612
  4. BACLOFEN [Concomitant]
     Indication: PRODUCT USED FOR UNKNOWN INDICATION
  5. CLONAZEPAM [Concomitant]
     Indication: COMPLEX REGIONAL PAIN SYNDROME
  6. IMPLANTED MORPHINE PUMP [Concomitant]
     Indication: COMPLEX REGIONAL PAIN SYNDROME
     Dates: start: 200412
  7. CHLORTHALIDONE [Concomitant]
     Indication: HYPERTENSION

REACTIONS (16)
  - Weight decreased [Not Recovered/Not Resolved]
  - Gastrointestinal disorder [Recovered/Resolved]
  - Incontinence [Recovered/Resolved]
  - Cough [Not Recovered/Not Resolved]
  - Blood potassium decreased [Not Recovered/Not Resolved]
  - Abasia [Recovered/Resolved]
  - Fall [Recovered/Resolved]
  - Thyroid fibrosis [Unknown]
  - Depressed mood [Recovered/Resolved]
  - Emotional disorder [Not Recovered/Not Resolved]
  - Thyroid function test abnormal [Unknown]
  - Syncope [Recovered/Resolved]
  - Pain in extremity [Not Recovered/Not Resolved]
  - Pain [Not Recovered/Not Resolved]
  - Hyperthyroidism [Unknown]
  - Hypothyroidism [Unknown]
